FAERS Safety Report 15484422 (Version 1)
Quarter: 2018Q4

REPORT INFORMATION
  Report Type: Spontaneous
  Country: FR (occurrence: FR)
  Receive Date: 20181010
  Receipt Date: 20181010
  Transmission Date: 20190205
  Serious: Yes (Hospitalization)
  Sender: FDA-Public Use
  Company Number: FR-SA-2018SA278293

PATIENT
  Age: 71 Year
  Sex: Male

DRUGS (2)
  1. CEFAZOLINE PANPHARMA [Suspect]
     Active Substance: CEFAZOLIN SODIUM
     Indication: OSTEITIS
     Route: 042
     Dates: start: 20180807, end: 20180829
  2. RIFADINE [Suspect]
     Active Substance: RIFAMPIN
     Indication: OSTEITIS
     Route: 048
     Dates: start: 20180813, end: 20180829

REACTIONS (1)
  - Hypoprothrombinaemia [Recovering/Resolving]

NARRATIVE: CASE EVENT DATE: 20180829
